FAERS Safety Report 4966396-7 (Version None)
Quarter: 2006Q2

REPORT INFORMATION
  Report Type: 
  Country: None (occurrence: None)
  Receive Date: 20060407
  Receipt Date: 20040729
  Transmission Date: 20061013
  Serious: Yes (Other)
  Sender: FDA-Public Use
  Company Number: AU-ROCHE-376205

PATIENT
  Age: 75 Year
  Sex: Female

DRUGS (8)
  1. BONIVA [Suspect]
     Indication: OSTEOPOROSIS POSTMENOPAUSAL
     Route: 042
     Dates: end: 20040729
  2. PLACEBO [Suspect]
     Indication: OSTEOPOROSIS POSTMENOPAUSAL
     Route: 048
     Dates: end: 20040729
  3. CARTIA XT [Concomitant]
     Dates: start: 19970615
  4. PLAVIX [Concomitant]
     Dates: start: 20020615
  5. NEXIUM [Concomitant]
     Dates: start: 20030516
  6. XALATAN [Concomitant]
     Dates: start: 20001215
  7. ACETAMINOPHEN [Concomitant]
     Dates: start: 20030115
  8. PREDNISOLONE [Concomitant]
     Dates: start: 20020915

REACTIONS (1)
  - POLYMYALGIA RHEUMATICA [None]
